FAERS Safety Report 21202899 (Version 2)
Quarter: 2022Q3

REPORT INFORMATION
  Report Type: Spontaneous
  Country: US (occurrence: US)
  Receive Date: 20220811
  Receipt Date: 20220901
  Transmission Date: 20221027
  Serious: Yes (Other)
  Sender: FDA-Public Use
  Company Number: US-GLAXOSMITHKLINE-US2022106631

PATIENT

DRUGS (2)
  1. BENLYSTA [Suspect]
     Active Substance: BELIMUMAB
     Indication: Systemic lupus erythematosus
     Dosage: UNK
     Route: 042
  2. BENLYSTA [Suspect]
     Active Substance: BELIMUMAB

REACTIONS (10)
  - Intracranial aneurysm [Unknown]
  - Systemic lupus erythematosus [Unknown]
  - Limb discomfort [Unknown]
  - Tooth abscess [Unknown]
  - Dry eye [Unknown]
  - Dysuria [Unknown]
  - Dry skin [Unknown]
  - Rhinorrhoea [Unknown]
  - Pain in extremity [Unknown]
  - Weight decreased [Unknown]
